FAERS Safety Report 7543824-4 (Version None)
Quarter: 2011Q2

REPORT INFORMATION
  Report Type: 
  Country: None (occurrence: None)
  Receive Date: 20110613
  Receipt Date: 20110531
  Transmission Date: 20111010
  Serious: Yes (Hospitalization)
  Sender: FDA-Public Use
  Company Number: CA-JNJFOC-20100704890

PATIENT
  Sex: Female
  Weight: 41 kg

DRUGS (3)
  1. REMICADE [Suspect]
     Indication: CROHN'S DISEASE
     Route: 042
     Dates: start: 20060104, end: 20100511
  2. METHOTREXATE [Concomitant]
     Route: 048
  3. REMICADE [Suspect]
     Indication: RHEUMATOID ARTHRITIS
     Route: 042
     Dates: start: 20060104, end: 20100511

REACTIONS (2)
  - CRANIAL NERVE DISORDER [None]
  - HODGKIN'S DISEASE [None]
